FAERS Safety Report 7226820-6 (Version None)
Quarter: 2011Q1

REPORT INFORMATION
  Report Type: 
  Country: None (occurrence: None)
  Receive Date: 20110110
  Receipt Date: 20110110
  Transmission Date: 20110831
  Serious: Yes (Hospitalization)
  Sender: FDA-Public Use
  Company Number: None

PATIENT
  Age: 52 Year
  Sex: Male
  Weight: 137.44 kg

DRUGS (1)
  1. TERAZOSIN HCL [Suspect]
     Indication: HYPERTENSION
     Dosage: 6 MG HS PO
     Route: 048
     Dates: start: 20100219, end: 20101005

REACTIONS (3)
  - HYPOTENSION [None]
  - DIZZINESS [None]
  - VISION BLURRED [None]
